FAERS Safety Report 18480580 (Version 3)
Quarter: 2022Q3

REPORT INFORMATION
  Report Type: Report from Study
  Country: DE (occurrence: DE)
  Receive Date: 20201109
  Receipt Date: 20220830
  Transmission Date: 20221027
  Serious: Yes (Hospitalization)
  Sender: FDA-Public Use
  Company Number: DE-MYLANLABS-2020M1092687

PATIENT
  Sex: Male

DRUGS (5)
  1. HULIO [Suspect]
     Active Substance: ADALIMUMAB-FKJP
     Indication: Axial spondyloarthritis
     Dosage: 40 MILLIGRAM, Q2W
     Route: 065
     Dates: start: 20200428
  2. HULIO [Suspect]
     Active Substance: ADALIMUMAB-FKJP
     Dosage: 1 DOSAGE FORM, Q2W (USAGE: ONCE EVERY 2 WEEKS (Q2W)   )
     Route: 065
     Dates: start: 20200428
  3. HULIO [Suspect]
     Active Substance: ADALIMUMAB-FKJP
     Dosage: 40 MILLIGRAM
     Route: 065
     Dates: start: 20200428
  4. CELECOXIB [Suspect]
     Active Substance: CELECOXIB
     Indication: Axial spondyloarthritis
     Dosage: 400 MILLIGRAM, 4XW
     Route: 065
     Dates: start: 20000101
  5. CELECOXIB [Suspect]
     Active Substance: CELECOXIB
     Dosage: 4 DOSAGE FORM, QW (USAGE: 4 TIMES PER WEEK (4XW))
     Route: 065
     Dates: start: 20000101

REACTIONS (2)
  - Hiatus hernia [Recovered/Resolved]
  - Oesophagogastric fundoplasty [Recovered/Resolved]

NARRATIVE: CASE EVENT DATE: 20200915
